FAERS Safety Report 20064503 (Version 1)
Quarter: 2021Q4

REPORT INFORMATION
  Report Type: Report from Study
  Country: US (occurrence: US)
  Receive Date: 20211112
  Receipt Date: 20211112
  Transmission Date: 20220304
  Serious: Yes (Other)
  Sender: FDA-Public Use
  Company Number: US-Taiho Oncology Inc-EU-2021-03289

PATIENT
  Age: 65 Year
  Sex: Female
  Weight: 76.2 kg

DRUGS (9)
  1. LONSURF [Suspect]
     Active Substance: TIPIRACIL HYDROCHLORIDE\TRIFLURIDINE
     Indication: Colon cancer metastatic
     Dosage: CYCLE 1
     Route: 048
     Dates: start: 20210527, end: 20210607
  2. LONSURF [Suspect]
     Active Substance: TIPIRACIL HYDROCHLORIDE\TRIFLURIDINE
     Dosage: CYCLE 2
     Route: 048
     Dates: start: 20210702, end: 20210706
  3. LONSURF [Suspect]
     Active Substance: TIPIRACIL HYDROCHLORIDE\TRIFLURIDINE
     Dosage: CYCLE 3
     Route: 048
     Dates: start: 20210804, end: 20210607
  4. LONSURF [Suspect]
     Active Substance: TIPIRACIL HYDROCHLORIDE\TRIFLURIDINE
     Dosage: CYCLE 4
     Route: 048
     Dates: start: 20210827, end: 20210907
  5. LONSURF [Suspect]
     Active Substance: TIPIRACIL HYDROCHLORIDE\TRIFLURIDINE
     Dosage: CYCLE 5
     Route: 048
     Dates: start: 20210924, end: 20211005
  6. COVID [Concomitant]
     Dates: start: 20210907
  7. EMLA [Concomitant]
     Active Substance: LIDOCAINE\PRILOCAINE
     Dosage: APPLY AS DIRECTED OVER PORT, 30-60 MINUTES PRIOR TO USE
  8. DELTASONE [Concomitant]
     Active Substance: PREDNISONE
     Indication: Fibromyalgia
     Dosage: EVERY MORNING
  9. ZOVIRAX [Concomitant]
     Active Substance: ACYCLOVIR
     Indication: Stomatitis

REACTIONS (8)
  - Hepatic enzyme increased [Unknown]
  - Blood bilirubin increased [Unknown]
  - Disease progression [Unknown]
  - Faecal volume decreased [Unknown]
  - Fibromyalgia [Unknown]
  - Injury [Unknown]
  - Oral herpes [Unknown]
  - Cytopenia [Unknown]

NARRATIVE: CASE EVENT DATE: 20210101
